FAERS Safety Report 18435952 (Version 1)
Quarter: 2020Q4

REPORT INFORMATION
  Report Type: Spontaneous
  Country: US (occurrence: US)
  Receive Date: 20201028
  Receipt Date: 20201028
  Transmission Date: 20210114
  Serious: No
  Sender: FDA-Public Use
  Company Number: None

PATIENT
  Sex: Female

DRUGS (1)
  1. ADCIRCA [Suspect]
     Active Substance: TADALAFIL
     Route: 048
     Dates: start: 20201009

REACTIONS (6)
  - Dizziness [None]
  - Product substitution issue [None]
  - Nausea [None]
  - Abdominal pain upper [None]
  - Hypersensitivity [None]
  - Diarrhoea [None]
